FAERS Safety Report 12863711 (Version 2)
Quarter: 2016Q4

REPORT INFORMATION
  Report Type: Spontaneous
  Country: US (occurrence: US)
  Receive Date: 20161019
  Receipt Date: 20161209
  Transmission Date: 20170207
  Serious: No
  Sender: FDA-Public Use
  Company Number: US-009507513-1610USA003690

PATIENT
  Age: 26 Year
  Sex: Female
  Weight: 60.77 kg

DRUGS (2)
  1. IMPLANON [Suspect]
     Active Substance: ETONOGESTREL
     Indication: CONTRACEPTION
     Dosage: 68 MG
     Route: 059
     Dates: start: 20140115
  2. IMPLANON [Suspect]
     Active Substance: ETONOGESTREL
     Dosage: UNK
     Route: 059
     Dates: end: 20140115

REACTIONS (4)
  - Amenorrhoea [Unknown]
  - Device difficult to use [Recovered/Resolved]
  - Complication associated with device [Recovered/Resolved]
  - Libido decreased [Unknown]

NARRATIVE: CASE EVENT DATE: 20161007
